FAERS Safety Report 26007931 (Version 1)
Quarter: 2025Q4

REPORT INFORMATION
  Report Type: Spontaneous
  Country: US (occurrence: None)
  Receive Date: 20251105
  Receipt Date: 20251105
  Transmission Date: 20260117
  Serious: Yes (Hospitalization)
  Sender: FDA-CTU
  Company Number: None

PATIENT
  Age: 20 Year
  Sex: Male
  Weight: 72.57 kg

DRUGS (1)
  1. BACTERIOSTATIC WATER [Suspect]
     Active Substance: WATER
     Indication: Self-medication

REACTIONS (4)
  - Injection site erythema [None]
  - Injection site pain [None]
  - Skin disorder [None]
  - Product advertising issue [None]

NARRATIVE: CASE EVENT DATE: 20250915
